FAERS Safety Report 24435779 (Version 1)
Quarter: 2024Q4

REPORT INFORMATION
  Report Type: Report from Study
  Country: US (occurrence: US)
  Receive Date: 20241015
  Receipt Date: 20241015
  Transmission Date: 20250115
  Serious: No
  Sender: CELLTRION
  Company Number: US-CELLTRION INC.-2024US012954

PATIENT

DRUGS (7)
  1. INFLIXIMAB [Suspect]
     Active Substance: INFLIXIMAB
     Indication: Tubulointerstitial nephritis
     Dosage: 5 MILLIGRAM/KILOGRAM, SINGLE INFUSION
  2. INFLIXIMAB [Suspect]
     Active Substance: INFLIXIMAB
     Dosage: 5 MILLIGRAM/KILOGRAM, FIVE CYCLES
  3. PREDNISONE [Suspect]
     Active Substance: PREDNISONE
     Indication: Tubulointerstitial nephritis
     Dosage: 60 MG ONCE DAILY TAPERED OVER 6 WEEKS
  4. PREDNISONE [Suspect]
     Active Substance: PREDNISONE
     Dosage: 40 MILLIGRAM
  5. PREDNISONE [Suspect]
     Active Substance: PREDNISONE
     Dosage: 10 MG ONCE DAILY
     Dates: start: 202301
  6. TOFACITINIB [Suspect]
     Active Substance: TOFACITINIB
     Indication: Tubulointerstitial nephritis
     Dosage: 5 MG DAILY
     Dates: start: 202211
  7. TAXOTERE [Suspect]
     Active Substance: DOCETAXEL
     Indication: Chemotherapy
     Dosage: UNK

REACTIONS (2)
  - Loss of therapeutic response [Unknown]
  - Intentional product use issue [Unknown]
